FAERS Safety Report 14200937 (Version 1)
Quarter: 2017Q4

REPORT INFORMATION
  Report Type: Spontaneous
  Country: US (occurrence: US)
  Receive Date: 20171117
  Receipt Date: 20171117
  Transmission Date: 20180321
  Serious: Yes (Other)
  Sender: FDA-Public Use
  Company Number: US-BAYER-2017-219395

PATIENT
  Age: 53 Year
  Sex: Female

DRUGS (3)
  1. ACETYLSALICYLIC ACID({=100 MG) [Suspect]
     Active Substance: ASPIRIN
     Dosage: UNK
  2. CANGRELOR [Suspect]
     Active Substance: CANGRELOR
  3. HEPARIN [Suspect]
     Active Substance: HEPARIN SODIUM

REACTIONS (6)
  - Craniocerebral injury [None]
  - Generalised tonic-clonic seizure [None]
  - Brain contusion [None]
  - Drug administration error [None]
  - Subdural haematoma [None]
  - Labelled drug-drug interaction medication error [None]
